FAERS Safety Report 9941142 (Version 2)
Quarter: 2014Q1

REPORT INFORMATION
  Report Type: Report from Study
  Country: US (occurrence: US)
  Receive Date: 20140303
  Receipt Date: 20140303
  Transmission Date: 20141002
  Serious: Yes (Hospitalization)
  Sender: FDA-Public Use
  Company Number: US-ABBVIE-12P-163-0969635-00

PATIENT
  Age: 11 Year
  Sex: Male
  Weight: 52 kg

DRUGS (5)
  1. HUMIRA 40 MG/0.8 ML PEN [Suspect]
     Indication: CROHN^S DISEASE
     Dates: start: 20110201, end: 201108
  2. HUMIRA 40 MG/0.8 ML PEN [Suspect]
     Dates: start: 201108
  3. PENTASA [Suspect]
     Indication: PRODUCT USED FOR UNKNOWN INDICATION
  4. FOLIC ACID [Concomitant]
     Indication: CROHN^S DISEASE
     Dosage: 1MG DAILY
     Route: 048
  5. IMODIUM [Concomitant]
     Indication: CROHN^S DISEASE
     Dosage: 2 MG DAILY
     Route: 048

REACTIONS (10)
  - Crohn^s disease [Unknown]
  - Dehydration [Unknown]
  - Pancreatitis [Unknown]
  - Diarrhoea [Unknown]
  - Dehydration [Unknown]
  - Device malfunction [Recovered/Resolved]
  - Incorrect dose administered [Recovered/Resolved]
  - Injection site pain [Unknown]
  - Injection site mass [Recovered/Resolved]
  - Drug ineffective [Unknown]
